FAERS Safety Report 9779005 (Version 2)
Quarter: 2014Q1

REPORT INFORMATION
  Report Type: Spontaneous
  Country: US (occurrence: US)
  Receive Date: 20131223
  Receipt Date: 20140210
  Transmission Date: 20141002
  Serious: Yes (Other)
  Sender: FDA-Public Use
  Company Number: US-TEVA-448953USA

PATIENT
  Sex: Female
  Weight: 104.42 kg

DRUGS (2)
  1. PARAGARD 380A [Suspect]
     Indication: CONTRACEPTION
     Route: 015
     Dates: end: 20131125
  2. CYMBALTA [Suspect]

REACTIONS (4)
  - Device breakage [Not Recovered/Not Resolved]
  - Medical device complication [Not Recovered/Not Resolved]
  - Menorrhagia [Unknown]
  - Dysmenorrhoea [Unknown]
